FAERS Safety Report 6295134-3 (Version None)
Quarter: 2009Q3

REPORT INFORMATION
  Report Type: 
  Country: None (occurrence: None)
  Receive Date: 20090803
  Receipt Date: 20090724
  Transmission Date: 20100115
  Serious: Yes (Death)
  Sender: FDA-Public Use
  Company Number: JP-ABBOTT-09P-087-0588547-00

PATIENT
  Age: 75 Year
  Sex: Male

DRUGS (5)
  1. LEUPLIN SR FOR INJECTION 11.25 MG [Suspect]
     Indication: PROSTATE CANCER STAGE IV
     Route: 058
     Dates: start: 20070515, end: 20071108
  2. CASODEX [Concomitant]
     Indication: PROSTATE CANCER STAGE IV
     Route: 048
     Dates: end: 20080110
  3. PAMILCON [Concomitant]
     Indication: DIABETES MELLITUS
     Route: 048
     Dates: end: 20080207
  4. ADALAT [Concomitant]
     Indication: HYPERTENSION
     Route: 048
     Dates: end: 20080207
  5. ENALAMERCK [Concomitant]
     Indication: HYPERTENSION
     Route: 048
     Dates: end: 20080207

REACTIONS (1)
  - PROSTATE CANCER STAGE IV [None]
